FAERS Safety Report 5007916-6 (Version None)
Quarter: 2006Q2

REPORT INFORMATION
  Report Type: 
  Country: None (occurrence: None)
  Receive Date: 20060517
  Receipt Date: 20060504
  Transmission Date: 20061013
  Serious: Yes (Other)
  Sender: FDA-Public Use
  Company Number: 2005098459

PATIENT
  Sex: Female

DRUGS (5)
  1. DEPO-MEDROL [Suspect]
     Indication: JOINT RANGE OF MOTION DECREASED
     Dates: start: 19980101
  2. KENALOG [Suspect]
     Indication: JOINT RANGE OF MOTION DECREASED
     Dates: start: 19980101
  3. DEXAMETHASONE SODIUM PHOSPHATE [Suspect]
     Indication: STEROID THERAPY
     Dosage: 6 MG (1 D)
     Dates: start: 20041102
  4. ALL OTHER THERAPEUTIC PRODUCTS (ALL OTHER THERAPEUTIC PRODUCTS) [Suspect]
     Indication: ILL-DEFINED DISORDER
     Dosage: 8 ML (1 D)
     Dates: start: 20041102
  5. METHADONE HCL [Concomitant]

REACTIONS (18)
  - ARTHROPATHY [None]
  - ASTHENIA [None]
  - DOCUMENTED HYPERSENSITIVITY TO ADMINISTERED DRUG [None]
  - DRUG EFFECT DECREASED [None]
  - DYSURIA [None]
  - FAECAL INCONTINENCE [None]
  - HEADACHE [None]
  - HYPOAESTHESIA [None]
  - INTERVERTEBRAL DISC DEGENERATION [None]
  - MOLE EXCISION [None]
  - MUSCLE SPASMS [None]
  - PAIN [None]
  - POISONING [None]
  - PYREXIA [None]
  - SURGERY [None]
  - VISUAL FIELD DEFECT [None]
  - WEIGHT DECREASED [None]
  - WRONG DRUG ADMINISTERED [None]
